FAERS Safety Report 14272010 (Version 3)
Quarter: 2018Q1

REPORT INFORMATION
  Report Type: Spontaneous
  Country: HK (occurrence: HK)
  Receive Date: 20171212
  Receipt Date: 20180207
  Transmission Date: 20180508
  Serious: Yes (Death, Hospitalization, Other)
  Sender: FDA-Public Use
  Company Number: HK-ROCHE-2033783

PATIENT
  Age: 67 Year
  Sex: Male
  Weight: 46 kg

DRUGS (7)
  1. NORVASC [Concomitant]
     Active Substance: AMLODIPINE BESYLATE
     Indication: HYPERTENSION
     Dosage: QD (DAILY)
     Route: 048
     Dates: start: 20160815, end: 20171227
  2. ATEZOLIZUMAB. [Suspect]
     Active Substance: ATEZOLIZUMAB
     Indication: LUNG NEOPLASM MALIGNANT
     Route: 042
     Dates: start: 20171023, end: 201711
  3. VANNAIR [Concomitant]
     Active Substance: BUDESONIDE\FORMOTEROL FUMARATE DIHYDRATE
     Indication: CHRONIC OBSTRUCTIVE PULMONARY DISEASE
     Dosage: BD (TWICE DAILY)
     Route: 055
     Dates: start: 20170627
  4. SIMVASTATIN. [Concomitant]
     Active Substance: SIMVASTATIN
     Indication: HYPERLIPIDAEMIA
     Dosage: QD (DAILY)
     Route: 048
     Dates: start: 20161124, end: 20171119
  5. DILANTIN [Concomitant]
     Active Substance: PHENYTOIN
     Indication: METASTASES TO CENTRAL NERVOUS SYSTEM
     Dosage: QD (DAILY)
     Route: 048
     Dates: start: 20171012, end: 20171115
  6. SIMVASTATIN. [Concomitant]
     Active Substance: SIMVASTATIN
     Dosage: NOCTE (AT NIGHT)
     Route: 048
     Dates: start: 20171128, end: 20171228
  7. KEPPRA [Concomitant]
     Active Substance: LEVETIRACETAM
     Indication: PROPHYLAXIS
     Route: 048
     Dates: start: 20171116

REACTIONS (9)
  - Unresponsive to stimuli [Unknown]
  - Pneumonia [Fatal]
  - Hypotension [Recovered/Resolved]
  - Hypokalaemia [Recovered/Resolved]
  - General physical health deterioration [Unknown]
  - Performance status decreased [Recovering/Resolving]
  - Decreased appetite [Not Recovered/Not Resolved]
  - Hypernatraemia [Recovering/Resolving]
  - Hyponatraemia [Recovered/Resolved]

NARRATIVE: CASE EVENT DATE: 20171102
